FAERS Safety Report 5922498-X (Version None)
Quarter: 2008Q4

REPORT INFORMATION
  Report Type: 
  Country: None (occurrence: None)
  Receive Date: 20081017
  Receipt Date: 20081006
  Transmission Date: 20090506
  Serious: Yes (Hospitalization)
  Sender: FDA-Public Use
  Company Number: PHHY2008FR24032

PATIENT
  Sex: Male

DRUGS (7)
  1. VOLTAREN [Suspect]
     Dosage: 100 MG (1 SUPPOSITORY)
     Route: 054
     Dates: start: 20080805
  2. PREVISCAN [Suspect]
     Dosage: 10 MG ; 3 DAYS/WEEK
  3. PREVISCAN [Suspect]
     Dosage: 15 MG ; 4 DAYS/WEEK
  4. LEVOTHYROX [Concomitant]
     Dosage: 100 UG/DAY
  5. FLECAINE [Concomitant]
     Dosage: 50 MG TWICE DAILY
  6. HEPT-A-MYL [Concomitant]
     Dosage: 70 DROPS/DAY (30,20,20)
     Route: 048
  7. ASCOFER [Concomitant]
     Dosage: 3 TABLETS/DAY
     Route: 048

REACTIONS (20)
  - APLASTIC ANAEMIA [None]
  - ASTHENIA [None]
  - BIOPSY [None]
  - BLOOD CREATININE INCREASED [None]
  - C-REACTIVE PROTEIN INCREASED [None]
  - CHOLESTASIS [None]
  - COLITIS ISCHAEMIC [None]
  - CYTOLYTIC HEPATITIS [None]
  - DIVERTICULITIS [None]
  - GASTROINTESTINAL ANGIODYSPLASIA HAEMORRHAGIC [None]
  - GASTROINTESTINAL HAEMORRHAGE [None]
  - HAEMOGLOBIN DECREASED [None]
  - INFLAMMATION [None]
  - INTERNATIONAL NORMALISED RATIO INCREASED [None]
  - MELAENA [None]
  - PALLOR [None]
  - PROTHROMBIN LEVEL ABNORMAL [None]
  - RENAL FAILURE ACUTE [None]
  - RETICULOCYTE COUNT ABNORMAL [None]
  - ULCER [None]
